FAERS Safety Report 4340146-X (Version None)
Quarter: 2004Q2

REPORT INFORMATION
  Report Type: 
  Country: None (occurrence: None)
  Receive Date: 20040416
  Receipt Date: 20040416
  Transmission Date: 20050107
  Serious: Yes (Hospitalization)
  Sender: FDA-Public Use
  Company Number: None

PATIENT
  Age: 57 Year
  Sex: Male
  Weight: 100.2449 kg

DRUGS (1)
  1. VANCOMYCIN IG (ABBOTT) [Suspect]
     Indication: OSTEOMYELITIS
     Dosage: 1 G IV Q 12 HOURS
     Route: 042
     Dates: start: 20040315, end: 20040319

REACTIONS (4)
  - BLOOD PRESSURE INCREASED [None]
  - CHEST PAIN [None]
  - HEADACHE [None]
  - TINNITUS [None]
